FAERS Safety Report 5203141-4 (Version None)
Quarter: 2006Q4

REPORT INFORMATION
  Report Type: 
  Country: None (occurrence: None)
  Receive Date: 20061016
  Receipt Date: 20051019
  Transmission Date: 20070319
  Serious: Yes (Other)
  Sender: FDA-Public Use
  Company Number: 2005145440

PATIENT
  Age: 53 Year
  Sex: Female

DRUGS (1)
  1. NEURONTIN [Suspect]
     Indication: HERPES ZOSTER
     Dosage: 3 IN 1 D, ORAL
     Route: 048
     Dates: start: 20050101, end: 20051001

REACTIONS (3)
  - CONVULSION [None]
  - NAUSEA [None]
  - TREMOR [None]
